FAERS Safety Report 12397291 (Version 1)
Quarter: 2016Q2

REPORT INFORMATION
  Report Type: Spontaneous
  Country: US (occurrence: None)
  Receive Date: 20160523
  Receipt Date: 20160523
  Transmission Date: 20160815
  Serious: Yes (Other)
  Sender: FDA-Public Use
  Company Number: None

PATIENT
  Age: 70 Year
  Sex: Female
  Weight: 83.92 kg

DRUGS (17)
  1. THYROID HORMONE [Concomitant]
  2. C [Concomitant]
  3. FISH OIL [Concomitant]
     Active Substance: FISH OIL
  4. SINGULAIR [Concomitant]
     Active Substance: MONTELUKAST SODIUM
  5. TYLENOL [Concomitant]
     Active Substance: ACETAMINOPHEN
  6. IPRATROPIUM BROMIDE. [Concomitant]
     Active Substance: IPRATROPIUM BROMIDE
  7. MULTIVITAMIN [Concomitant]
     Active Substance: VITAMINS
  8. ALBUTEROL INHALER [Concomitant]
     Active Substance: ALBUTEROL
  9. ATORVASTATIN [Concomitant]
     Active Substance: ATORVASTATIN
  10. IBUPROFEN. [Concomitant]
     Active Substance: IBUPROFEN
  11. VITAMIN D3 [Concomitant]
     Active Substance: CHOLECALCIFEROL
  12. ARNUITY ELLIPTA [Suspect]
     Active Substance: FLUTICASONE FUROATE
     Indication: ASTHMA
     Dosage: 2 PUFF(S) ONCE A DAY INHALATION
     Route: 055
  13. CARAFATE [Concomitant]
     Active Substance: SUCRALFATE
  14. ACIPHEX [Concomitant]
     Active Substance: RABEPRAZOLE SODIUM
  15. CPAP [Concomitant]
     Active Substance: DEVICE
  16. MUSCLE RELAXERS [Concomitant]
     Active Substance: UNSPECIFIED INGREDIENT
  17. ANTIHISTAMINES (VARIED) [Concomitant]

REACTIONS (1)
  - Tooth discolouration [None]

NARRATIVE: CASE EVENT DATE: 20160311
